FAERS Safety Report 15669884 (Version 1)
Quarter: 2018Q4

REPORT INFORMATION
  Report Type: Spontaneous
  Country: US (occurrence: US)
  Receive Date: 20181129
  Receipt Date: 20181129
  Transmission Date: 20190205
  Serious: No
  Sender: FDA-Public Use
  Company Number: US-GLAXOSMITHKLINE-US2018215663

PATIENT
  Age: 66 Year
  Sex: Female

DRUGS (2)
  1. ABREVA [Suspect]
     Active Substance: DOCOSANOL
     Indication: ORAL HERPES
     Dosage: UNK, (5 TIMES)QD
     Dates: start: 20181116, end: 20181126
  2. ABREVA [Suspect]
     Active Substance: DOCOSANOL
     Dosage: UNK, (5 TIMES)QD
     Dates: start: 20181116, end: 20181126

REACTIONS (1)
  - Drug effect incomplete [Unknown]
